FAERS Safety Report 24245238 (Version 1)
Quarter: 2024Q3

REPORT INFORMATION
  Report Type: Report from Study
  Country: NL (occurrence: NL)
  Receive Date: 20240823
  Receipt Date: 20240823
  Transmission Date: 20241016
  Serious: Yes (Death)
  Sender: ABBVIE
  Company Number: NL-ABBVIE-5891281

PATIENT
  Sex: Female

DRUGS (4)
  1. CARBIDOPA\LEVODOPA [Suspect]
     Active Substance: CARBIDOPA\LEVODOPA
     Indication: Parkinson^s disease
     Dosage: MD: 8.5 ML, CD: 22.0 ML/H, ED: 20.0 ML?DURATION: REMAINS AT 16 HOURS?LAST ADMIN DATE-JUL 2024
     Route: 050
     Dates: start: 20240705
  2. CARBIDOPA\LEVODOPA [Suspect]
     Active Substance: CARBIDOPA\LEVODOPA
     Route: 050
     Dates: start: 20160420
  3. LACTULOSE [Concomitant]
     Active Substance: LACTULOSE
     Indication: Abnormal faeces
  4. LACTULOSE [Concomitant]
     Active Substance: LACTULOSE
     Indication: Abnormal faeces

REACTIONS (3)
  - General physical health deterioration [Fatal]
  - Fall [Fatal]
  - Gastrointestinal motility disorder [Unknown]
